FAERS Safety Report 7809853-8 (Version None)
Quarter: 2011Q4

REPORT INFORMATION
  Report Type: 
  Country: None (occurrence: None)
  Receive Date: 20111012
  Receipt Date: 20111006
  Transmission Date: 20120403
  Serious: Yes (Hospitalization)
  Sender: FDA-Public Use
  Company Number: DE-ABBOTT-11P-062-0838724-00

PATIENT
  Sex: Female

DRUGS (2)
  1. AMITRIPTYLINE HCL [Concomitant]
     Indication: PRODUCT USED FOR UNKNOWN INDICATION
  2. HUMIRA [Suspect]
     Indication: CROHN'S DISEASE
     Dates: start: 20091229

REACTIONS (6)
  - DRY MOUTH [None]
  - TONGUE DISCOLOURATION [None]
  - DYSPHONIA [None]
  - BURNING MOUTH SYNDROME [None]
  - OESOPHAGITIS [None]
  - GASTRIC PH DECREASED [None]
